FAERS Safety Report 10548899 (Version 1)
Quarter: 2014Q4

REPORT INFORMATION
  Report Type: Spontaneous
  Country: IT (occurrence: IT)
  Receive Date: 20141028
  Receipt Date: 20141028
  Transmission Date: 20150529
  Serious: Yes (Hospitalization)
  Sender: FDA-Public Use
  Company Number: IT-BAYER-2014-154115

PATIENT
  Age: 66 Year
  Sex: Male

DRUGS (5)
  1. HUMALOG [Concomitant]
     Active Substance: INSULIN LISPRO
     Dosage: UNK, UNK
     Route: 058
  2. LANTUS [Concomitant]
     Active Substance: INSULIN GLARGINE
     Dosage: UNK, UNK
     Route: 058
  3. CARDIOASPIRIN [Suspect]
     Active Substance: ASPIRIN
     Indication: ANGIOPATHY
     Dosage: 100 MG, QD
     Route: 048
     Dates: start: 20121001, end: 20140923
  4. CARDIOASPIRIN [Suspect]
     Active Substance: ASPIRIN
     Indication: ANGIOPATHY
     Dosage: UNK
     Dates: start: 2014
  5. COUMADIN [Suspect]
     Active Substance: WARFARIN SODIUM
     Indication: ANGIOPATHY
     Dosage: UNK, UNK
     Route: 048
     Dates: start: 20120901, end: 20140923

REACTIONS (2)
  - Melaena [Recovered/Resolved]
  - International normalised ratio increased [Recovered/Resolved]

NARRATIVE: CASE EVENT DATE: 20140924
